FAERS Safety Report 8985479 (Version 2)
Quarter: 2013Q1

REPORT INFORMATION
  Report Type: Spontaneous
  Country: IT (occurrence: IT)
  Receive Date: 20121226
  Receipt Date: 20130103
  Transmission Date: 20140127
  Serious: Yes (Hospitalization, Other)
  Sender: FDA-Public Use
  Company Number: IT-PFIZER INC-2012324727

PATIENT
  Age: 76 Year
  Sex: Female

DRUGS (6)
  1. CORDARONE [Suspect]
     Dosage: 200 MG, 1X/DAY
     Route: 048
     Dates: start: 20121201, end: 20121210
  2. THEO-DUR [Concomitant]
     Dosage: UNK
     Dates: start: 20121201, end: 20121210
  3. LASIX [Concomitant]
     Dosage: UNK
     Dates: start: 20121201, end: 20121210
  4. LUVION [Concomitant]
     Dosage: UNK
     Dates: start: 20121201, end: 20121210
  5. ROSUVASTATIN [Concomitant]
     Dosage: UNK
     Dates: start: 20121201, end: 20121210
  6. ALLOPURINOL [Concomitant]
     Dosage: UNK
     Dates: start: 20121201, end: 20121210

REACTIONS (2)
  - Cardiac failure [Unknown]
  - Respiratory failure [Unknown]
